FAERS Safety Report 8276408-3 (Version None)
Quarter: 2012Q2

REPORT INFORMATION
  Report Type: 
  Country: None (occurrence: None)
  Receive Date: 20120412
  Receipt Date: 20120405
  Transmission Date: 20120825
  Serious: Yes (Hospitalization)
  Sender: FDA-Public Use
  Company Number: US-RB-037771-12

PATIENT
  Age: 42 Year
  Sex: Female

DRUGS (1)
  1. MUCINEX D [Suspect]
     Indication: PRODUCT USED FOR UNKNOWN INDICATION
     Dosage: SHE HAD BEEN INGESTING 3 TO 4 GRAMS DAILY
     Route: 048

REACTIONS (7)
  - ANION GAP INCREASED [None]
  - DRUG ABUSE [None]
  - INCORRECT DRUG ADMINISTRATION DURATION [None]
  - RENAL TUBULAR ACIDOSIS [None]
  - TACHYCARDIA [None]
  - FLANK PAIN [None]
  - NEPHROLITHIASIS [None]
